FAERS Safety Report 21766793 (Version 1)
Quarter: 2022Q4

REPORT INFORMATION
  Report Type: Spontaneous
  Country: CA (occurrence: CA)
  Receive Date: 20221222
  Receipt Date: 20221222
  Transmission Date: 20230113
  Serious: Yes (Other)
  Sender: FDA-Public Use
  Company Number: CA-PFIZER INC-2020168649

PATIENT
  Age: 46 Year
  Sex: Female

DRUGS (5)
  1. XELJANZ XR [Suspect]
     Active Substance: TOFACITINIB CITRATE
     Indication: Rheumatoid arthritis
     Dosage: 11 MG, ONCE DAILY
     Route: 048
     Dates: start: 20200409
  2. JAMP DULOXETINE [Concomitant]
     Dosage: UNK
  3. JAMP DULOXETINE [Concomitant]
     Dosage: 1 DF
     Route: 065
  4. PLAQUENIL [Concomitant]
     Active Substance: HYDROXYCHLOROQUINE SULFATE
     Dosage: UNK
  5. PLAQUENIL [Concomitant]
     Active Substance: HYDROXYCHLOROQUINE SULFATE
     Dosage: 1 DF
     Route: 065

REACTIONS (11)
  - Drug ineffective [Unknown]
  - Knee arthroplasty [Unknown]
  - Headache [Recovering/Resolving]
  - Seborrhoea [Unknown]
  - Rash papular [Unknown]
  - Dysuria [Recovered/Resolved]
  - Impaired work ability [Unknown]
  - Product dose omission in error [Unknown]
  - Condition aggravated [Not Recovered/Not Resolved]
  - Back pain [Unknown]
  - Arthralgia [Unknown]

NARRATIVE: CASE EVENT DATE: 20200101
